FAERS Safety Report 18130537 (Version 1)
Quarter: 2020Q3

REPORT INFORMATION
  Report Type: Spontaneous
  Country: US (occurrence: US)
  Receive Date: 20200810
  Receipt Date: 20200810
  Transmission Date: 20201103
  Serious: No
  Sender: FDA-Public Use
  Company Number: US-BEH-2020120912

PATIENT
  Sex: Female

DRUGS (1)
  1. HIZENTRA [Suspect]
     Active Substance: HUMAN IMMUNOGLOBULIN G
     Indication: NERVOUS SYSTEM DISORDER
     Dosage: 20 GRAM, EVERY 5 DAYS
     Route: 058
     Dates: start: 20200501

REACTIONS (3)
  - Weight decreased [Unknown]
  - Product use in unapproved indication [Unknown]
  - No adverse event [Unknown]
